FAERS Safety Report 5685184-X (Version None)
Quarter: 2008Q1

REPORT INFORMATION
  Report Type: 
  Country: None (occurrence: None)
  Receive Date: 20080328
  Receipt Date: 20080317
  Transmission Date: 20080703
  Serious: Yes (Hospitalization)
  Sender: FDA-Public Use
  Company Number: BE-ELI_LILLY_AND_COMPANY-BE200802000140

PATIENT
  Age: 11 Year
  Sex: Female
  Weight: 35 kg

DRUGS (2)
  1. STRATTERA [Suspect]
     Indication: ATTENTION DEFICIT/HYPERACTIVITY DISORDER
     Dosage: 40 MG, DAILY (1/D)
     Route: 048
  2. STRATTERA [Suspect]
     Dosage: 80 MG, TWO TIMES 40 MG
     Route: 048
     Dates: start: 20080201, end: 20080201

REACTIONS (2)
  - ACCIDENTAL OVERDOSE [None]
  - HEART RATE INCREASED [None]
